FAERS Safety Report 11685515 (Version 4)
Quarter: 2018Q1

REPORT INFORMATION
  Report Type: Report from Study
  Country: BR (occurrence: BR)
  Receive Date: 20151030
  Receipt Date: 20180309
  Transmission Date: 20180508
  Serious: Yes (Life-Threatening, Hospitalization, Other)
  Sender: FDA-Public Use
  Company Number: PHHY2015BR139035

PATIENT
  Age: 34 Year
  Sex: Male
  Weight: 125 kg

DRUGS (15)
  1. BACLOFEN. [Concomitant]
     Active Substance: BACLOFEN
     Indication: MUSCLE SPASMS
     Dosage: 3 DF, QD
     Route: 048
     Dates: start: 201505
  2. FLUOXETIN [Concomitant]
     Active Substance: FLUOXETINE HYDROCHLORIDE
     Indication: DEPRESSION
     Dosage: 2 TABLET, QD
     Route: 065
  3. FLUOXETIN [Concomitant]
     Active Substance: FLUOXETINE HYDROCHLORIDE
     Indication: ANXIETY
     Dosage: 3 DF, QD
     Route: 048
     Dates: start: 2001
  4. SIRDALUD [Concomitant]
     Active Substance: TIZANIDINE
     Indication: MUSCLE SPASMS
     Dosage: 2 DF, BID
     Route: 048
     Dates: start: 201505
  5. GABAPENTIN. [Concomitant]
     Active Substance: GABAPENTIN
     Indication: PRODUCT USED FOR UNKNOWN INDICATION
     Dosage: 2 DF (300 MG), QD
     Route: 048
  6. MANTIDAN [Concomitant]
     Active Substance: AMANTADINE HYDROCHLORIDE
     Indication: PRODUCT USED FOR UNKNOWN INDICATION
     Dosage: 2 TABLET, QD
     Route: 065
  7. DOXAZOSIN [Concomitant]
     Active Substance: DOXAZOSIN\DOXAZOSIN MESYLATE
     Indication: URINARY INCONTINENCE
     Dosage: 1 DF, QD; 3 YEARS AGO
     Route: 048
  8. RETEMIC UD [Concomitant]
     Indication: PRODUCT USED FOR UNKNOWN INDICATION
     Dosage: 1 TABLET, QD
     Route: 065
  9. FINGOLIMOD HYDROCHLORIDE [Suspect]
     Active Substance: FINGOLIMOD HYDROCHLORIDE
     Indication: MULTIPLE SCLEROSIS
     Dosage: 0.5 MG, QD
     Route: 048
  10. AMANTADINE. [Concomitant]
     Active Substance: AMANTADINE HYDROCHLORIDE
     Indication: MULTIPLE SCLEROSIS
  11. CARBAMAZEPINE. [Concomitant]
     Active Substance: CARBAMAZEPINE
     Indication: EPILEPSY
     Dosage: 2 TABLET, QD
     Route: 065
     Dates: start: 2001
  12. FLUOXETIN [Concomitant]
     Active Substance: FLUOXETINE HYDROCHLORIDE
     Indication: WEIGHT ABNORMAL
  13. RETEMIC [Concomitant]
     Active Substance: OXYBUTYNIN CHLORIDE
     Indication: URINARY INCONTINENCE
     Dosage: 1 DF, QD; 3 YEARS AGO
     Route: 048
  14. GILENYA [Suspect]
     Active Substance: FINGOLIMOD HYDROCHLORIDE
     Indication: MULTIPLE SCLEROSIS
     Dosage: 0.5 MG, QD
     Route: 048
     Dates: start: 20150518
  15. AMANTADINE. [Concomitant]
     Active Substance: AMANTADINE HYDROCHLORIDE
     Indication: FATIGUE
     Dosage: 3 DF (100 MG), QD
     Route: 048
     Dates: start: 2001

REACTIONS (21)
  - Rash erythematous [Recovered/Resolved]
  - Blister [Recovered/Resolved]
  - Injury [Not Recovered/Not Resolved]
  - Chills [Recovering/Resolving]
  - Ear pain [Recovered/Resolved]
  - Influenza [Recovered/Resolved]
  - Cough [Recovering/Resolving]
  - Hypoacusis [Recovering/Resolving]
  - Stevens-Johnson syndrome [Recovering/Resolving]
  - Malaise [Recovering/Resolving]
  - Fatigue [Recovering/Resolving]
  - Musculoskeletal stiffness [Recovering/Resolving]
  - Gait disturbance [Recovered/Resolved]
  - Concomitant disease aggravated [Recovering/Resolving]
  - Back pain [Recovered/Resolved]
  - Mobility decreased [Recovering/Resolving]
  - Dysuria [Unknown]
  - Nasopharyngitis [Recovered/Resolved]
  - Pyrexia [Recovering/Resolving]
  - Ear congestion [Recovering/Resolving]
  - Oropharyngeal pain [Recovered/Resolved]

NARRATIVE: CASE EVENT DATE: 20150927
